FAERS Safety Report 25189610 (Version 1)
Quarter: 2025Q2

REPORT INFORMATION
  Report Type: Report from Study
  Country: US (occurrence: US)
  Receive Date: 20250411
  Receipt Date: 20250411
  Transmission Date: 20250717
  Serious: Yes (Other)
  Sender: ALEXION PHARMACEUTICALS
  Company Number: US-AstraZeneca-CH-00843614A

PATIENT

DRUGS (1)
  1. ACALABRUTINIB [Suspect]
     Active Substance: ACALABRUTINIB
     Indication: B-cell small lymphocytic lymphoma
     Dosage: 100 MILLIGRAM, BID

REACTIONS (10)
  - Myocardial infarction [Unknown]
  - Breast cancer [Unknown]
  - Appendix disorder [Unknown]
  - Infection [Unknown]
  - Renal disorder [Unknown]
  - Eye disorder [Unknown]
  - Alopecia [Unknown]
  - Respiration abnormal [Unknown]
  - Scratch [Unknown]
  - Skin disorder [Unknown]
